FAERS Safety Report 5809918-6 (Version None)
Quarter: 2008Q3

REPORT INFORMATION
  Report Type: 
  Country: None (occurrence: None)
  Receive Date: 20080701
  Receipt Date: 20080616
  Transmission Date: 20090109
  Serious: Yes (Disabling)
  Sender: FDA-Public Use
  Company Number: HAPL-002-08-GB

PATIENT
  Age: 87 Year
  Sex: Female

DRUGS (10)
  1. HUMAN NORMAL IMMUNOGLOBULIN FOR INTRAVENOUS ADMINISTRATION [Suspect]
     Indication: MYASTHENIA GRAVIS
     Dosage: 10 G, I.V.
     Route: 042
     Dates: start: 20080201, end: 20080401
  2. AMLODIPINE [Concomitant]
  3. ASPIRIN [Concomitant]
  4. BENDROFLUMETHIAZIDE (BENDROFLUMETHAZIDE) [Concomitant]
  5. CITALOPRAM HYDROBROMIDE [Concomitant]
  6. LANSOPRAZOLE [Concomitant]
  7. METHOTREXATE [Concomitant]
  8. PERINDOPRIL ERBUMINE [Concomitant]
  9. PROPANTHELINE (PROPANTHELINE) [Concomitant]
  10. PYRIDOSTIGMINE (PYRIDOSTIGMINE) [Concomitant]

REACTIONS (1)
  - CHOREA [None]
